FAERS Safety Report 23352227 (Version 1)
Quarter: 2023Q4

REPORT INFORMATION
  Report Type: Spontaneous
  Country: US (occurrence: None)
  Receive Date: 20231229
  Receipt Date: 20231229
  Transmission Date: 20240109
  Serious: Yes (Death)
  Sender: FDA-Public Use
  Company Number: None

PATIENT
  Age: 80 Year
  Sex: Female

DRUGS (2)
  1. SIVEXTRO [Suspect]
     Active Substance: TEDIZOLID PHOSPHATE
     Dosage: FREQUENCY : 4 TIMES A DAY;?
     Route: 048
  2. CRESEMBA [Suspect]
     Active Substance: ISAVUCONAZONIUM SULFATE
     Dosage: FREQUENCY : 4 TIMES A DAY;?
     Route: 048

REACTIONS (1)
  - Death [None]

NARRATIVE: CASE EVENT DATE: 20231229
